FAERS Safety Report 15094503 (Version 1)
Quarter: 2018Q2

REPORT INFORMATION
  Report Type: Spontaneous
  Country: IT (occurrence: IT)
  Receive Date: 20180630
  Receipt Date: 20180630
  Transmission Date: 20180711
  Serious: Yes (Other)
  Sender: FDA-Public Use
  Company Number: IT-TEVA-2018-IT-916859

PATIENT
  Age: 5 Year
  Sex: Male
  Weight: 25 kg

DRUGS (2)
  1. AMOXICILLIN. [Suspect]
     Active Substance: AMOXICILLIN
     Indication: OROPHARYNGEAL PAIN
     Dosage: 2 DOSAGE FORMS DAILY;
     Route: 048
     Dates: start: 20170819, end: 20170822
  2. AMOXICILLIN. [Suspect]
     Active Substance: AMOXICILLIN
     Indication: OFF LABEL USE

REACTIONS (2)
  - Stomatitis [Unknown]
  - Diarrhoea [Unknown]

NARRATIVE: CASE EVENT DATE: 20170822
